FAERS Safety Report 17389683 (Version 1)
Quarter: 2020Q1

REPORT INFORMATION
  Report Type: Spontaneous
  Country: FR (occurrence: FR)
  Receive Date: 20200207
  Receipt Date: 20200207
  Transmission Date: 20200409
  Serious: Yes (Hospitalization)
  Sender: FDA-Public Use
  Company Number: FR-PFIZER INC-2020049330

PATIENT
  Age: 2 Year
  Sex: Female

DRUGS (1)
  1. DOXORUBICIN HCL [Suspect]
     Active Substance: DOXORUBICIN HYDROCHLORIDE
     Indication: RETROPERITONEAL NEOPLASM
     Dosage: UNK
     Route: 042
     Dates: start: 20161224, end: 20170522

REACTIONS (3)
  - Cardiac failure [Recovered/Resolved]
  - Congestive cardiomyopathy [Recovered/Resolved]
  - Pulmonary oedema [Recovered/Resolved]

NARRATIVE: CASE EVENT DATE: 201707
